FAERS Safety Report 17190475 (Version 1)
Quarter: 2019Q4

REPORT INFORMATION
  Report Type: Spontaneous
  Country: US (occurrence: US)
  Receive Date: 20191220
  Receipt Date: 20191220
  Transmission Date: 20200122
  Serious: Yes (Death)
  Sender: FDA-Public Use
  Company Number: None

PATIENT
  Age: 56 Year
  Sex: Female
  Weight: 112.5 kg

DRUGS (32)
  1. PLAQUENIL [Concomitant]
     Active Substance: HYDROXYCHLOROQUINE SULFATE
  2. AZATHIOPRINE. [Concomitant]
     Active Substance: AZATHIOPRINE
  3. HYDROXYZINE PAMOATE. [Concomitant]
     Active Substance: HYDROXYZINE PAMOATE
  4. VISTARIL [Concomitant]
     Active Substance: HYDROXYZINE PAMOATE
  5. LAMICTAL XR [Concomitant]
     Active Substance: LAMOTRIGINE
  6. NEURONTIN ATENOLOL [Concomitant]
  7. DELTASONE [Concomitant]
     Active Substance: PREDNISONE
  8. NOVOLIN N NPH [Concomitant]
  9. BISMUTH SUBSALICYLATE. [Concomitant]
     Active Substance: BISMUTH SUBSALICYLATE
  10. DIPHENHYDRAMINE. [Concomitant]
     Active Substance: DIPHENHYDRAMINE
  11. TENORMIN [Concomitant]
     Active Substance: ATENOLOL
  12. PAMELOR [Concomitant]
     Active Substance: NORTRIPTYLINE HYDROCHLORIDE
  13. CETRAZINE [Concomitant]
  14. BENADRYL [Concomitant]
     Active Substance: DIPHENHYDRAMINE HYDROCHLORIDE
  15. SULPHAMETOXAZOLE-TRIMETHOPRIM [Concomitant]
  16. NORTRIPTYLIN [Concomitant]
     Active Substance: NORTRIPTYLINE
  17. GLIMEPIRIDE. [Concomitant]
     Active Substance: GLIMEPIRIDE
  18. AMARYL [Concomitant]
     Active Substance: GLIMEPIRIDE
  19. LASIX [Concomitant]
     Active Substance: FUROSEMIDE
  20. HUMULIN R NOVOLIN R [Concomitant]
  21. ZYRTEC [Concomitant]
     Active Substance: CETIRIZINE HYDROCHLORIDE
  22. GABAPENTIN. [Suspect]
     Active Substance: GABAPENTIN
     Indication: BACK PAIN
     Route: 048
  23. HYDROCYCHLOROQUINE BACTRIM [Concomitant]
  24. ULTRAM ACCU-CHEK TEST STRIPS [Concomitant]
  25. TRAMADOL. [Suspect]
     Active Substance: TRAMADOL
     Indication: PAIN
  26. IMURAN [Concomitant]
     Active Substance: AZATHIOPRINE
  27. FUROSEMIDE. [Concomitant]
     Active Substance: FUROSEMIDE
  28. TRAMADOL. [Concomitant]
     Active Substance: TRAMADOL
  29. LAMOTRIGINE GABAPENTIN [Concomitant]
  30. PREDNISONE. [Concomitant]
     Active Substance: PREDNISONE
  31. HUMULIN N NOVOLIN N INSULIN R [Concomitant]
  32. PEPTO-BISMIL [Concomitant]

REACTIONS (4)
  - Respiratory arrest [None]
  - Cutaneous sarcoidosis [None]
  - Pulmonary sarcoidosis [None]
  - Neurosarcoidosis [None]

NARRATIVE: CASE EVENT DATE: 20190228
